FAERS Safety Report 13328922 (Version 5)
Quarter: 2021Q2

REPORT INFORMATION
  Report Type: Report from Study
  Country: US (occurrence: US)
  Receive Date: 20170313
  Receipt Date: 20210421
  Transmission Date: 20210716
  Serious: Yes (Hospitalization, Other)
  Sender: FDA-Public Use
  Company Number: US-JNJFOC-20161022369

PATIENT
  Age: 78 Year
  Sex: Male
  Weight: 120 kg

DRUGS (11)
  1. HYDROCHLOROTHIAZIDE. [Concomitant]
     Active Substance: HYDROCHLOROTHIAZIDE
     Indication: JOINT SWELLING
  2. CETIRIZINE HYDROCHLORIDE. [Suspect]
     Active Substance: CETIRIZINE HYDROCHLORIDE
     Indication: RESPIRATORY TRACT CONGESTION
     Route: 065
     Dates: start: 20170303
  3. ALBUTEROL. [Concomitant]
     Active Substance: ALBUTEROL
  4. FINASTERIDE. [Concomitant]
     Active Substance: FINASTERIDE
     Indication: PROSTATIC DISORDER
  5. DIAZEPAM. [Concomitant]
     Active Substance: DIAZEPAM
     Indication: SLEEP DISORDER
     Route: 048
  6. ATORVASTATIN [Concomitant]
     Active Substance: ATORVASTATIN
     Indication: BLOOD CHOLESTEROL ABNORMAL
  7. MVI [Concomitant]
     Active Substance: VITAMINS
     Indication: SUPPLEMENTATION THERAPY
  8. IMBRUVICA [Suspect]
     Active Substance: IBRUTINIB
     Indication: CHRONIC LYMPHOCYTIC LEUKAEMIA
     Route: 048
     Dates: start: 20160715, end: 201708
  9. IMBRUVICA [Suspect]
     Active Substance: IBRUTINIB
     Route: 048
     Dates: start: 2017, end: 20170901
  10. MUCINEX [Concomitant]
     Active Substance: GUAIFENESIN
  11. METFORMIN [Concomitant]
     Active Substance: METFORMIN HYDROCHLORIDE
     Indication: DIABETES MELLITUS

REACTIONS (22)
  - Heart rate increased [Unknown]
  - Weight increased [Not Recovered/Not Resolved]
  - Rash macular [Not Recovered/Not Resolved]
  - Productive cough [Not Recovered/Not Resolved]
  - Muscle spasms [Not Recovered/Not Resolved]
  - Chills [Unknown]
  - Immunodeficiency [Not Recovered/Not Resolved]
  - Joint swelling [Not Recovered/Not Resolved]
  - Respiratory tract congestion [Recovering/Resolving]
  - Blood pressure increased [Unknown]
  - Fatigue [Not Recovered/Not Resolved]
  - Wheezing [Recovering/Resolving]
  - Tooth extraction [Unknown]
  - Peripheral swelling [Recovering/Resolving]
  - Contusion [Not Recovered/Not Resolved]
  - Bronchospasm [Unknown]
  - Livedo reticularis [Unknown]
  - Pollakiuria [Unknown]
  - Arthritis [Not Recovered/Not Resolved]
  - Haematuria [Not Recovered/Not Resolved]
  - Somnolence [Recovered/Resolved]
  - Dizziness [Recovering/Resolving]

NARRATIVE: CASE EVENT DATE: 2016
